FAERS Safety Report 17223929 (Version 1)
Quarter: 2020Q1

REPORT INFORMATION
  Report Type: Spontaneous
  Country: DE (occurrence: DE)
  Receive Date: 20200102
  Receipt Date: 20200102
  Transmission Date: 20200409
  Serious: Yes (Other)
  Sender: FDA-Public Use
  Company Number: DE-SA-2019SA359937

PATIENT
  Age: 50 Year
  Sex: Male

DRUGS (3)
  1. VARGATEF [Suspect]
     Active Substance: NINTEDANIB
     Indication: ADENOCARCINOMA
     Dosage: 400 MG, QD
     Route: 065
     Dates: start: 201703, end: 201706
  2. DOCETAXEL. [Suspect]
     Active Substance: DOCETAXEL
     Indication: ADENOCARCINOMA
     Dosage: 225 MG/M2, QW (75 MG/M2, QW3)
     Route: 065
     Dates: start: 201703, end: 201703
  3. DOCETAXEL. [Suspect]
     Active Substance: DOCETAXEL
     Dosage: 225 MG/M2, QW (75 MG/M2, QW3)
     Route: 065
     Dates: start: 201706, end: 201706

REACTIONS (1)
  - Malignant neoplasm progression [Unknown]

NARRATIVE: CASE EVENT DATE: 201707
